FAERS Safety Report 9390975 (Version 2)
Quarter: 2013Q4

REPORT INFORMATION
  Report Type: Spontaneous
  Country: US (occurrence: US)
  Receive Date: 20130709
  Receipt Date: 20131120
  Transmission Date: 20140711
  Serious: No
  Sender: FDA-Public Use
  Company Number: US-PFIZER INC-2013200210

PATIENT
  Age: 62 Year
  Sex: Female
  Weight: 113.38 kg

DRUGS (21)
  1. NEURONTIN [Suspect]
     Indication: FIBROMYALGIA
     Dosage: 300 MG, 2X/DAY
     Route: 048
  2. METOPROLOL [Concomitant]
     Dosage: 100 MG, 2X/DAY (AM/PM)
  3. PLAVIX [Concomitant]
     Dosage: 75 MG, 1X/DAY (AM)
  4. L-THYROXIN [Concomitant]
     Dosage: 0.137 UG, 1X/DAY (AM)
  5. ESTRADIOL [Concomitant]
     Dosage: 2 MG, 1X/DAY (AM)
  6. SIMVASTATIN [Concomitant]
     Dosage: 20 MG, 1X/DAY (PM)
  7. ZOLPIDEM [Concomitant]
     Dosage: 10 MG, 1X/DAY (PM)
  8. METFORMIN [Concomitant]
     Dosage: 500 MG, 2X/DAY (AM/PM)
  9. WARFARIN [Concomitant]
     Dosage: 7.5 MG, 1X/DAY (PM)
  10. BUPROPION [Concomitant]
     Dosage: 150 MG, 2X/DAY (AM/PM)
  11. FUROSEMIDE [Concomitant]
     Indication: OEDEMA PERIPHERAL
     Dosage: 40 MG, 1X/DAY (AM)
  12. FUROSEMIDE [Concomitant]
     Indication: DYSPNOEA
     Dosage: 80 MG (ONCE DAILY), AS NEEDED
  13. VITAMIN B12 [Concomitant]
     Dosage: 1000 MG, 1X/DAY (AM)
  14. ASA [Concomitant]
     Dosage: 81 MG, 1X/DAY (PM)
  15. KRILL OIL [Concomitant]
     Dosage: 300 MG, 1X/DAY (PM)
  16. STOOL SOFTENER [Concomitant]
     Dosage: 200 MG, AS NEEDED (PM)
  17. KLOR-CON [Concomitant]
     Indication: DIURETIC THERAPY
     Dosage: 10 MEQ, AS NEEDED (ONCE DAILY AM)
  18. METHOCARBAMOL [Concomitant]
     Indication: MUSCLE SPASMS
     Dosage: 750MG THREE TIMES DAILY; TIME AS NEEDED (8HRS)
  19. OXYCODONE/PARACETAMOL [Concomitant]
     Indication: PAIN
     Dosage: 5MG OXYCODONE, 325MG PARACETAMOL (3XDAY PRN (8HRS))
  20. VENTOLIN HFA [Concomitant]
     Indication: DYSPNOEA
     Dosage: 90 MCG 2 PUFFS, 4XDAY PRN (6HRS)
  21. LISINOPRIL [Concomitant]
     Dosage: 40 MG, 1X/DAY (AM)

REACTIONS (2)
  - Off label use [Unknown]
  - Drug ineffective for unapproved indication [Unknown]
